FAERS Safety Report 9329016 (Version 1)
Quarter: 2013Q2

REPORT INFORMATION
  Report Type: Spontaneous
  Country: US (occurrence: US)
  Receive Date: 20130604
  Receipt Date: 20130604
  Transmission Date: 20140414
  Serious: No
  Sender: FDA-Public Use
  Company Number: US-SANOFI-AVENTIS-2012SA071401

PATIENT
  Age: 85 Year
  Sex: Female
  Weight: 56.24 kg

DRUGS (2)
  1. LANTUS SOLOSTAR [Suspect]
     Dosage: DOSE:11 UNIT(S)
     Route: 058
  2. SOLOSTAR [Suspect]

REACTIONS (3)
  - Heart rate decreased [Unknown]
  - Feeling cold [Unknown]
  - Blood glucose increased [Unknown]
